FAERS Safety Report 8638824 (Version 2)
Quarter: 2013Q4

REPORT INFORMATION
  Report Type: Spontaneous
  Country: US (occurrence: US)
  Receive Date: 20120627
  Receipt Date: 20131107
  Transmission Date: 20140711
  Serious: Yes (Other)
  Sender: FDA-Public Use
  Company Number: US-ASTRAZENECA-2012SE41002

PATIENT
  Age: 33 Year
  Sex: Male
  Weight: 127 kg

DRUGS (2)
  1. TOPROL XL [Suspect]
     Indication: HYPERTENSION
     Route: 048
     Dates: start: 2011, end: 20131022
  2. OTHERS [Concomitant]

REACTIONS (5)
  - Blindness [Unknown]
  - Local swelling [Not Recovered/Not Resolved]
  - Nasopharyngitis [Unknown]
  - Fatigue [Unknown]
  - Drug dose omission [Unknown]
